FAERS Safety Report 10085705 (Version 1)
Quarter: 2014Q2

REPORT INFORMATION
  Report Type: Spontaneous
  Country: US (occurrence: None)
  Receive Date: 20140416
  Receipt Date: 20140416
  Transmission Date: 20141212
  Serious: Yes (Hospitalization)
  Sender: FDA-Public Use
  Company Number: VAL_03067_2014

PATIENT
  Sex: Female

DRUGS (24)
  1. PROGRAF [Concomitant]
  2. VANCOMYCIN [Concomitant]
  3. FLAGYL [Concomitant]
  4. CEFEPIME [Concomitant]
  5. PRAVACHOL [Concomitant]
  6. ATENOLOL [Concomitant]
  7. LIALDA [Concomitant]
  8. LEVOFLOXACIN [Concomitant]
  9. AMLODIPINE [Concomitant]
  10. CEPHALEXIN [Concomitant]
  11. EVISTA [Concomitant]
  12. METRONIDAZOLE [Concomitant]
  13. PREDNISONE [Concomitant]
  14. BRIMONIDINE [Concomitant]
  15. LEVAQUIN [Concomitant]
  16. DAPTOMYCIN [Concomitant]
  17. LOSARTAN [Concomitant]
  18. LACTOBACILLUS ACIDOPHILUS [Concomitant]
  19. CALCITRIOL [Suspect]
     Indication: PRODUCT USED FOR UNKNOWN INDICATION
     Route: 048
  20. VALCYTE (NOT SPECIFIED) [Suspect]
     Indication: PRODUCT USED FOR UNKNOWN INDICATION
     Route: 048
  21. CELLCEPT [Suspect]
     Indication: PRODUCT USED FOR UNKNOWN INDICATION
     Route: 048
  22. MESALAMINE [Concomitant]
  23. OFLOXACIN [Concomitant]
  24. PRAVASTATIN [Concomitant]

REACTIONS (25)
  - Asthenia [None]
  - Escherichia infection [None]
  - Colitis [None]
  - Bacteraemia [None]
  - Pneumonia [None]
  - Nausea [None]
  - Renal atrophy [None]
  - Skin ulcer [None]
  - Oedema [None]
  - Fatigue [None]
  - Malaise [None]
  - Oedema [None]
  - Cardiovascular disorder [None]
  - Decreased appetite [None]
  - Weight decreased [None]
  - Diarrhoea haemorrhagic [None]
  - Abdominal pain [None]
  - Haemoglobin decreased [None]
  - Nephrolithiasis [None]
  - Renal cyst [None]
  - Atelectasis [None]
  - Pleural effusion [None]
  - Azotaemia [None]
  - Cytomegalovirus infection [None]
  - Necrosis [None]
